FAERS Safety Report 7570103-1 (Version None)
Quarter: 2011Q2

REPORT INFORMATION
  Report Type: 
  Country: None (occurrence: None)
  Receive Date: 20110622
  Receipt Date: 20110622
  Transmission Date: 20111010
  Serious: Yes (Other)
  Sender: FDA-Public Use
  Company Number: None

PATIENT
  Sex: Female
  Weight: 70.3075 kg

DRUGS (1)
  1. CHIGARID - COLGIN CO. 2230 VALDINA ST DALLAS, TX 75207 [Suspect]
     Dosage: 15 YR OLD 1 TIME ONLY  55 YR OLD 1 TIME ONLY

REACTIONS (3)
  - APPLICATION SITE PAIN [None]
  - APPLICATION SITE PRURITUS [None]
  - APPLICATION SITE SCAB [None]
